FAERS Safety Report 9875400 (Version 1)
Quarter: 2014Q1

REPORT INFORMATION
  Report Type: Spontaneous
  Country: US (occurrence: None)
  Receive Date: 20140205
  Receipt Date: 20140205
  Transmission Date: 20141002
  Serious: Yes (Hospitalization)
  Sender: FDA-Public Use
  Company Number: None

PATIENT
  Age: 79 Year
  Sex: Male
  Weight: 91.5 kg

DRUGS (1)
  1. AZACITIDINE [Suspect]
     Dates: end: 20140112

REACTIONS (2)
  - Pseudomonal bacteraemia [None]
  - Septic shock [None]
